FAERS Safety Report 8247027 (Version 2)
Quarter: 2013Q2

REPORT INFORMATION
  Report Type: Report from Study
  Country: US (occurrence: US)
  Receive Date: 20111116
  Receipt Date: 20130507
  Transmission Date: 20140414
  Serious: Yes (Hospitalization, Other)
  Sender: FDA-Public Use
  Company Number: US-UCBSA-028662

PATIENT
  Age: 51 Year
  Sex: Male
  Weight: 79 kg

DRUGS (15)
  1. CIMZIA [Suspect]
     Indication: CROHN^S DISEASE
     Route: 058
     Dates: start: 20090905
  2. CIMZIA [Suspect]
     Indication: CROHN^S DISEASE
     Route: 058
     Dates: start: 20091210
  3. CIMZIA [Suspect]
     Indication: CROHN^S DISEASE
     Route: 058
     Dates: start: 20100110
  4. CIMZIA [Suspect]
     Indication: CROHN^S DISEASE
     Route: 058
     Dates: start: 20100413
  5. CIMZIA [Suspect]
     Indication: CROHN^S DISEASE
     Route: 058
     Dates: start: 20100514
  6. CIMZIA [Suspect]
     Indication: CROHN^S DISEASE
     Route: 058
     Dates: start: 20100618
  7. CIMZIA [Suspect]
     Indication: CROHN^S DISEASE
     Route: 058
     Dates: start: 20100723
  8. CIMZIA [Suspect]
     Indication: CROHN^S DISEASE
     Dosage: 02/MAR/2011, THE PATIENT WAS TAKING CIMZIA AT THAT TIME
     Route: 058
  9. MESALAMINE [Concomitant]
     Indication: CROHN^S DISEASE
     Dates: start: 200912
  10. 6-MP [Concomitant]
     Indication: CROHN^S DISEASE
  11. INFLIXIMAB [Concomitant]
     Indication: CROHN^S DISEASE
  12. LOPERAMIDE [Concomitant]
     Indication: CROHN^S DISEASE
  13. OXYCODONE [Concomitant]
     Indication: PAIN
     Dosage: 1-2 EVERY 4 HOURS AS NEEDED
     Route: 048
     Dates: start: 201005
  14. PERCOCET [Concomitant]
     Indication: PAIN
     Dosage: 5MG/325 MG, 1 EVERY 6 HOURS
     Route: 048
     Dates: start: 2003
  15. ZOLOFT [Concomitant]
     Indication: DEPRESSION
     Route: 048
     Dates: start: 2004

REACTIONS (1)
  - Colitis [Recovered/Resolved]
